FAERS Safety Report 23247858 (Version 3)
Quarter: 2024Q2

REPORT INFORMATION
  Report Type: Report from Study
  Country: TR (occurrence: TR)
  Receive Date: 20231130
  Receipt Date: 20240426
  Transmission Date: 20240716
  Serious: Yes (Other)
  Sender: FDA-Public Use
  Company Number: TR-PFIZER INC-PV202300194177

PATIENT
  Sex: Male
  Weight: 75 kg

DRUGS (2)
  1. ELRANATAMAB [Suspect]
     Active Substance: ELRANATAMAB
     Indication: Plasma cell myeloma refractory
     Dosage: 76 MG
     Dates: start: 20230407, end: 20231025
  2. ELRANATAMAB [Suspect]
     Active Substance: ELRANATAMAB
     Dosage: 44 MG ONCE A WEEK
     Dates: end: 20231025

REACTIONS (3)
  - Hepatitis B reactivation [Unknown]
  - Papilloedema [Unknown]
  - Intracranial pressure increased [Unknown]

NARRATIVE: CASE EVENT DATE: 20230101
